FAERS Safety Report 4296341-1 (Version None)
Quarter: 2004Q1

REPORT INFORMATION
  Report Type: 
  Country: None (occurrence: None)
  Receive Date: 20040213
  Receipt Date: 20040213
  Transmission Date: 20041129
  Serious: Yes (Hospitalization)
  Sender: FDA-Public Use
  Company Number: None

PATIENT
  Sex: Male
  Weight: 74.8435 kg

DRUGS (5)
  1. TOPROL-XL [Suspect]
     Indication: ATRIAL FIBRILLATION
     Dosage: PO
     Route: 048
  2. CORDARONE [Concomitant]
  3. AMBIEN [Concomitant]
  4. XANAX [Concomitant]
  5. WARFARIN SODIUM [Concomitant]

REACTIONS (5)
  - BRADYCARDIA [None]
  - CHEST DISCOMFORT [None]
  - DIZZINESS [None]
  - MEDICATION ERROR [None]
  - PALPITATIONS [None]
